FAERS Safety Report 17073482 (Version 2)
Quarter: 2019Q4

REPORT INFORMATION
  Report Type: Spontaneous
  Country: US (occurrence: US)
  Receive Date: 20191126
  Receipt Date: 20191202
  Transmission Date: 20200122
  Serious: Yes (Death, Other)
  Sender: FDA-Public Use
  Company Number: US-ABBVIE-19K-163-3169254-00

PATIENT
  Age: 75 Year
  Sex: Female

DRUGS (1)
  1. IMBRUVICA [Suspect]
     Active Substance: IBRUTINIB
     Indication: CHRONIC LYMPHOCYTIC LEUKAEMIA
     Route: 048
     Dates: start: 20191010

REACTIONS (16)
  - Vertigo [Unknown]
  - Headache [Unknown]
  - Somnolence [Unknown]
  - Parosmia [Unknown]
  - Hyponatraemia [Fatal]
  - Malaise [Unknown]
  - Psychotic disorder [Unknown]
  - Nasal congestion [Unknown]
  - Musculoskeletal pain [Unknown]
  - Coma [Fatal]
  - Hyponatraemia [Fatal]
  - Fatigue [Unknown]
  - Brain injury [Unknown]
  - Generalised tonic-clonic seizure [Fatal]
  - Neck pain [Recovering/Resolving]
  - Hyperacusis [Unknown]

NARRATIVE: CASE EVENT DATE: 201911
